FAERS Safety Report 9070515 (Version 2)
Quarter: 2013Q4

REPORT INFORMATION
  Report Type: Report from Study
  Country: CA (occurrence: CA)
  Receive Date: 20130215
  Receipt Date: 20131017
  Transmission Date: 20140711
  Serious: Yes (Other)
  Sender: FDA-Public Use
  Company Number: CA-JNJFOC-20130111348

PATIENT
  Age: 70 Year
  Sex: Female
  Weight: 90 kg

DRUGS (2)
  1. REMICADE [Suspect]
     Indication: COLITIS
     Dosage: EVERY 6-8 WEEKS, INFUSION NUMBER 46
     Route: 042
     Dates: start: 20130205
  2. REMICADE [Suspect]
     Indication: COLITIS
     Dosage: 45 INFUSIONS TODATE
     Route: 042

REACTIONS (5)
  - Rectal haemorrhage [Unknown]
  - Hypotension [Recovering/Resolving]
  - Heart rate decreased [Recovering/Resolving]
  - Infusion related reaction [Recovering/Resolving]
  - Cellulitis [Recovered/Resolved]
